FAERS Safety Report 9504375 (Version 1)
Quarter: 2013Q3

REPORT INFORMATION
  Report Type: Spontaneous
  Country: GB (occurrence: GB)
  Receive Date: 20130906
  Receipt Date: 20130906
  Transmission Date: 20140515
  Serious: Yes (Hospitalization)
  Sender: FDA-Public Use
  Company Number: GB-WATSON-2013-15755

PATIENT
  Age: 74 Year
  Sex: Female

DRUGS (2)
  1. SIMVASTATIN (UNKNOWN) [Suspect]
     Indication: PRODUCT USED FOR UNKNOWN INDICATION
     Dosage: 20 MG, DAILY
     Route: 048
  2. CLARITHROMYCIN (UNKNOWN) [Suspect]
     Indication: BLISTER INFECTED
     Route: 048

REACTIONS (3)
  - Muscular weakness [Unknown]
  - Drug interaction [Unknown]
  - Malaise [Unknown]
